FAERS Safety Report 23403531 (Version 1)
Quarter: 2024Q1

REPORT INFORMATION
  Report Type: Other
  Country: ES (occurrence: ES)
  Receive Date: 20240116
  Receipt Date: 20240116
  Transmission Date: 20240410
  Serious: Yes (Hospitalization, Disabling, Other)
  Sender: FDA-Public Use
  Company Number: ES-DEXPHARM-20240075

PATIENT
  Age: 88 Year
  Sex: Female

DRUGS (6)
  1. DEXAMETHASONE\TOBRAMYCIN [Suspect]
     Active Substance: DEXAMETHASONE\TOBRAMYCIN
     Dosage: EYE DROPS OF TOBRAMYCIN-DEXAMETHASONE
  2. MOXIFLOXACIN [Suspect]
     Active Substance: MOXIFLOXACIN
  3. DOXYCYCLINE [Suspect]
     Active Substance: DOXYCYCLINE
  4. METHYLPREDNISOLONE HEMISUCCINATE [Suspect]
     Active Substance: METHYLPREDNISOLONE HEMISUCCINATE
     Dosage: INTRAVENOUS SYSTEMIC TREATMENT WITH METHYLPREDNISOLONE SUCCINATE AT A DAILY DOSE OF 60 MG FOR THR...
  5. PREDNISONE [Suspect]
     Active Substance: PREDNISONE
     Dosage: WEEKLY TAPERING DOSE OF ORAL PREDNISONE AT 30 MG/DAY
  6. METHOTREXATE [Suspect]
     Active Substance: METHOTREXATE
     Dosage: METHOTREXATE SUBCUTANEOUS INJECTION AT A DOSE OF 7.5 MG PER WEEK WAS ALSO INITIATED.

REACTIONS (2)
  - Scleral thinning [Recovering/Resolving]
  - Hyperglycaemia [Unknown]
